FAERS Safety Report 4847930-4 (Version None)
Quarter: 2005Q4

REPORT INFORMATION
  Report Type: 
  Country: None (occurrence: None)
  Receive Date: 20051207
  Receipt Date: 20051207
  Transmission Date: 20060501
  Serious: No
  Sender: FDA-Public Use
  Company Number: None

PATIENT
  Age: 33 Year
  Sex: Male
  Weight: 97.5234 kg

DRUGS (1)
  1. VIOXX [Suspect]
     Indication: BACK PAIN
     Dosage: 50MG   3X DAY  PO
     Route: 048
     Dates: start: 19980117, end: 19990327

REACTIONS (5)
  - ANGINA PECTORIS [None]
  - CHEST PAIN [None]
  - PRURITUS [None]
  - RASH [None]
  - UNEVALUABLE EVENT [None]
